FAERS Safety Report 5092798-7 (Version None)
Quarter: 2006Q3

REPORT INFORMATION
  Report Type: 
  Country: None (occurrence: None)
  Receive Date: 20060828
  Receipt Date: 20040816
  Transmission Date: 20061208
  Serious: Yes (Hospitalization, Other)
  Sender: FDA-Public Use
  Company Number: USA-2004-0024952

PATIENT
  Age: 45 Year
  Sex: Female
  Weight: 113.4 kg

DRUGS (9)
  1. OXYCONTIN [Suspect]
     Indication: DRUG USE FOR UNKNOWN INDICATION
     Dosage: SEE IMAGE
     Dates: start: 20000703, end: 20020101
  2. CELEBREX [Concomitant]
  3. TRAZODONE HCL [Concomitant]
  4. FLUOXETINE [Concomitant]
  5. CLONIDINE [Concomitant]
  6. NEURONTIN [Concomitant]
  7. WELLBUTRIN [Concomitant]
  8. FLEXERIL [Concomitant]
  9. ZOCOR [Concomitant]

REACTIONS (51)
  - ANXIETY [None]
  - ARTHRALGIA [None]
  - BACK PAIN [None]
  - BLOOD PRESSURE INCREASED [None]
  - BURNING SENSATION [None]
  - BURSITIS [None]
  - CHEST PAIN [None]
  - CHILLS [None]
  - COMPLETED SUICIDE [None]
  - CRYING [None]
  - DEPRESSION [None]
  - DIARRHOEA [None]
  - DRUG ABUSER [None]
  - DRUG DEPENDENCE [None]
  - DRUG WITHDRAWAL SYNDROME [None]
  - DYSPNOEA [None]
  - EAR PAIN [None]
  - EMOTIONAL DISTRESS [None]
  - EYE SWELLING [None]
  - FALL [None]
  - FIBROMYALGIA [None]
  - HOT FLUSH [None]
  - HYPERHIDROSIS [None]
  - HYPERSOMNIA [None]
  - INSOMNIA [None]
  - INTENTIONAL OVERDOSE [None]
  - JOINT CREPITATION [None]
  - JOINT INJURY [None]
  - JOINT SPRAIN [None]
  - LIMB INJURY [None]
  - MUSCULOSKELETAL PAIN [None]
  - NAUSEA [None]
  - NECK PAIN [None]
  - NERVOUSNESS [None]
  - OCULAR HYPERAEMIA [None]
  - OSTEOARTHRITIS [None]
  - PAIN [None]
  - PERSONALITY DISORDER [None]
  - PHARYNGEAL OEDEMA [None]
  - PHARYNGOLARYNGEAL PAIN [None]
  - PRODUCTIVE COUGH [None]
  - SOMNOLENCE [None]
  - SUBSTANCE ABUSE [None]
  - SUICIDAL IDEATION [None]
  - THERAPEUTIC AGENT TOXICITY [None]
  - THYROID NEOPLASM [None]
  - THYROIDITIS [None]
  - TRI-IODOTHYRONINE INCREASED [None]
  - TRISMUS [None]
  - VAGINAL DISCHARGE [None]
  - WEIGHT DECREASED [None]
